FAERS Safety Report 4413719-3 (Version None)
Quarter: 2004Q2

REPORT INFORMATION
  Report Type: 
  Country: None (occurrence: None)
  Receive Date: 20040630
  Receipt Date: 20040407
  Transmission Date: 20050107
  Serious: No
  Sender: FDA-Public Use
  Company Number: 04P-163-0256279-00

PATIENT
  Age: 73 Year
  Sex: Female
  Weight: 65.7716 kg

DRUGS (8)
  1. HUMIRA [Suspect]
     Indication: RHEUMATOID ARTHRITIS
     Dosage: 40 MG, 1 IN 2 WK, SUBCUTANEOUS
     Route: 058
     Dates: start: 20040101, end: 20040317
  2. DICLOFENAC [Concomitant]
  3. GLUCOSAMINE [Concomitant]
  4. CALCIUM [Concomitant]
  5. MULTI-VITAMINS [Concomitant]
  6. LEXAPRO [Concomitant]
  7. LEVOTHYROXINE SODIUM [Concomitant]
  8. 'RELAXANT' [Concomitant]

REACTIONS (1)
  - DRUG INEFFECTIVE [None]
